FAERS Safety Report 6732285-0 (Version None)
Quarter: 2010Q2

REPORT INFORMATION
  Report Type: 
  Country: None (occurrence: None)
  Receive Date: 20100519
  Receipt Date: 20100513
  Transmission Date: 20101027
  Serious: Yes (Congenital Anomaly)
  Sender: FDA-Public Use
  Company Number: B0653323A

PATIENT
  Age: 5 Year
  Sex: Female

DRUGS (1)
  1. AROPAX [Suspect]
     Indication: DRUG USE FOR UNKNOWN INDICATION

REACTIONS (4)
  - CARDIAC MURMUR [None]
  - CONGENITAL HIP DEFORMITY [None]
  - DRUG EXPOSURE DURING PREGNANCY [None]
  - VISUAL ACUITY REDUCED [None]
